FAERS Safety Report 21250376 (Version 1)
Quarter: 2022Q3

REPORT INFORMATION
  Report Type: Spontaneous
  Country: US (occurrence: US)
  Receive Date: 20220824
  Receipt Date: 20220824
  Transmission Date: 20221027
  Serious: Yes (Other)
  Sender: FDA-Public Use
  Company Number: US-BAUSCH-BL-2022-020619

PATIENT
  Age: 44 Year
  Sex: Female

DRUGS (1)
  1. ELIDEL [Suspect]
     Active Substance: PIMECROLIMUS
     Indication: Dermatitis
     Route: 061
     Dates: start: 20220815, end: 20220816

REACTIONS (5)
  - Swelling face [Unknown]
  - Swollen tongue [Unknown]
  - Rash [Unknown]
  - Swelling [Unknown]
  - Dermatitis [Unknown]
